FAERS Safety Report 12390336 (Version 1)
Quarter: 2016Q2

REPORT INFORMATION
  Report Type: Spontaneous
  Country: US (occurrence: US)
  Receive Date: 20160520
  Receipt Date: 20160520
  Transmission Date: 20160815
  Serious: No
  Sender: FDA-Public Use
  Company Number: US-BAUSCH-BL-2016-007220

PATIENT
  Age: 27 Year
  Sex: Female
  Weight: 45.4 kg

DRUGS (13)
  1. NU-DERM CLEAR [Suspect]
     Active Substance: HYDROQUINONE
     Indication: PRODUCT USED FOR UNKNOWN INDICATION
     Dosage: 3 TIMES PER WEEK
     Dates: start: 201511, end: 20160111
  2. NU-DERM HYDRATE [Suspect]
     Active Substance: COSMETICS
     Indication: PRODUCT USED FOR UNKNOWN INDICATION
     Dosage: APPLIED EVERY OTHER NIGHT.
     Dates: start: 201511, end: 20160111
  3. NU-DERM EXFODERM [Suspect]
     Active Substance: COSMETICS
     Indication: PRODUCT USED FOR UNKNOWN INDICATION
     Dosage: 3 TIMES PER WEEK
     Dates: start: 201511, end: 20160111
  4. NU-DERM GENTLE CLEANSER [Suspect]
     Active Substance: COSMETICS
     Indication: PRODUCT USED FOR UNKNOWN INDICATION
     Dosage: APPLIED EVERY OTHER NIGHT.
     Dates: start: 201511
  5. OBAGI ELASTIDERM EYE CREAM [Suspect]
     Active Substance: COSMETICS
     Indication: THERAPEUTIC SKIN CARE TOPICAL
     Dosage: APPLIED EVERY OTHER NIGHT.
     Route: 061
     Dates: start: 201511, end: 20160111
  6. OMEPRAZOLE. [Concomitant]
     Active Substance: OMEPRAZOLE
     Indication: PRODUCT USED FOR UNKNOWN INDICATION
     Route: 048
  7. HYDROCORTISONE. [Suspect]
     Active Substance: HYDROCORTISONE
     Indication: PRODUCT USED FOR UNKNOWN INDICATION
     Dates: start: 20160111, end: 20160113
  8. OBAGI TRETINOIN CREAM USP 0.05% (TRIAX) [Suspect]
     Active Substance: TRETINOIN
     Indication: THERAPEUTIC SKIN CARE TOPICAL
     Dosage: APPLIED EVERY OTHER NIGHT
     Dates: start: 201511, end: 20160111
  9. NU-DERM SUN SHIELD SPF 50 SUNSCREEN [Suspect]
     Active Substance: OCTINOXATE\ZINC OXIDE
     Indication: PRODUCT USED FOR UNKNOWN INDICATION
     Dosage: APPLIED EVERY OTHER NIGHT.
     Dates: start: 201511, end: 20160111
  10. VYVANSE [Concomitant]
     Active Substance: LISDEXAMFETAMINE DIMESYLATE
     Indication: PRODUCT USED FOR UNKNOWN INDICATION
     Route: 048
  11. NU-DERM TONER [Suspect]
     Active Substance: COSMETICS
     Indication: PRODUCT USED FOR UNKNOWN INDICATION
     Dosage: APPLIED EVERY OTHER NIGHT.
     Dates: start: 201511, end: 20160111
  12. OBAGI TRETINOIN CREAM USP 0.05% (TRIAX) [Suspect]
     Active Substance: TRETINOIN
     Dosage: APPLIED EVERY OTHER NIGHT.
     Dates: start: 20160208
  13. NU-DERM CLEAR [Suspect]
     Active Substance: HYDROQUINONE
     Dates: start: 20160219, end: 201602

REACTIONS (10)
  - Dry skin [Recovering/Resolving]
  - Rash [Recovering/Resolving]
  - Application site erythema [None]
  - Application site rash [None]
  - Swelling face [Recovering/Resolving]
  - Erythema [Recovering/Resolving]
  - Application site inflammation [None]
  - Application site acne [None]
  - Application site dryness [None]
  - Acne [Recovering/Resolving]

NARRATIVE: CASE EVENT DATE: 201601
